FAERS Safety Report 22536125 (Version 4)
Quarter: 2025Q1

REPORT INFORMATION
  Report Type: Spontaneous
  Country: US (occurrence: US)
  Receive Date: 20230608
  Receipt Date: 20250122
  Transmission Date: 20250409
  Serious: Yes (Hospitalization)
  Sender: SANOFI AVENTIS
  Company Number: US-SA-SAC20230607001319

PATIENT
  Age: 65 Year
  Sex: Male

DRUGS (15)
  1. DUPIXENT [Suspect]
     Active Substance: DUPILUMAB
     Indication: Asthma
     Dosage: 300 MG, QOW
     Route: 058
     Dates: start: 20210805
  2. IPRATROPIUM [Concomitant]
     Active Substance: IPRATROPIUM
  3. IPRATROPIUM [Concomitant]
     Active Substance: IPRATROPIUM
  4. PREDNISONE [Concomitant]
     Active Substance: PREDNISONE
  5. PREDNISONE [Concomitant]
     Active Substance: PREDNISONE
  6. PROCTO-MED HC [Concomitant]
     Active Substance: HYDROCORTISONE
  7. CORTICOSTEROID NOS [Concomitant]
     Active Substance: CORTICOSTEROID NOS
     Dosage: UNK UNK, QD
     Route: 048
  8. ELIQUIS [Concomitant]
     Active Substance: APIXABAN
  9. EPINEPHRINE [Concomitant]
     Active Substance: EPINEPHRINE
  10. ESZOPICLONE [Concomitant]
     Active Substance: ESZOPICLONE
  11. GABAPENTIN [Concomitant]
     Active Substance: GABAPENTIN
  12. LEVALBUTEROL [Concomitant]
     Active Substance: LEVALBUTEROL
  13. MYCOPHENOLIC ACID [Concomitant]
     Active Substance: MYCOPHENOLIC ACID
  14. PREDNISONE [Concomitant]
     Active Substance: PREDNISONE
  15. PREDNISONE [Concomitant]
     Active Substance: PREDNISONE

REACTIONS (6)
  - Hospitalisation [Unknown]
  - Impaired quality of life [Not Recovered/Not Resolved]
  - Eye irritation [Not Recovered/Not Resolved]
  - Eye pruritus [Not Recovered/Not Resolved]
  - Drug ineffective [Unknown]
  - Injection site reaction [Unknown]

NARRATIVE: CASE EVENT DATE: 20230601
